FAERS Safety Report 8883056 (Version 1)
Quarter: 2012Q4

REPORT INFORMATION
  Report Type: Report from Study
  Country: CA (occurrence: CA)
  Receive Date: 20121104
  Receipt Date: 20121104
  Transmission Date: 20130627
  Serious: Yes (Other)
  Sender: FDA-Public Use
  Company Number: CA-JNJFOC-20121013824

PATIENT
  Age: 60 None
  Sex: Female
  Weight: 78.1 kg

DRUGS (12)
  1. ATACAND [Concomitant]
     Indication: HYPERTENSION
     Route: 065
  2. FOLIC ACID [Concomitant]
     Route: 065
  3. ST JOHN^S WORT [Concomitant]
     Route: 065
  4. NIACIN [Concomitant]
     Route: 065
  5. VITAMIN D [Concomitant]
     Route: 065
  6. CALCIUM [Concomitant]
     Route: 065
  7. MAGNESIUM [Concomitant]
     Route: 065
  8. REMICADE [Suspect]
     Indication: ANKYLOSING SPONDYLITIS
     Dosage: 29 infusion
     Route: 042
     Dates: start: 20090928
  9. REMICADE [Suspect]
     Indication: ANKYLOSING SPONDYLITIS
     Dosage: 28th infusion
     Route: 042
     Dates: start: 20120911
  10. REMICADE [Suspect]
     Indication: ANKYLOSING SPONDYLITIS
     Route: 042
     Dates: start: 20121023
  11. KETOPROFEN [Concomitant]
     Indication: RHEUMATOID ARTHRITIS
     Route: 065
  12. MTX [Concomitant]
     Indication: RHEUMATOID ARTHRITIS
     Route: 048

REACTIONS (4)
  - Fall [Not Recovered/Not Resolved]
  - Oedema peripheral [Not Recovered/Not Resolved]
  - Tendon disorder [Not Recovered/Not Resolved]
  - Joint swelling [Not Recovered/Not Resolved]
